FAERS Safety Report 10091750 (Version 1)
Quarter: 2014Q2

REPORT INFORMATION
  Report Type: Spontaneous
  Country: US (occurrence: US)
  Receive Date: 20140421
  Receipt Date: 20140421
  Transmission Date: 20141212
  Serious: Yes (Other)
  Sender: FDA-Public Use
  Company Number: US-PURDUE-USA-2004-0015061

PATIENT
  Sex: Female

DRUGS (3)
  1. OXYFAST CONCENTRATE 20 MG/ML [Suspect]
     Indication: PAIN
     Dosage: UNK MG, UNK
  2. OXYCONTIN TABLETS [Concomitant]
     Indication: PAIN
     Dosage: 80 MG, TID
  3. METHADONE [Concomitant]
     Indication: PAIN
     Dosage: UNK UNK, UNK

REACTIONS (1)
  - Memory impairment [Unknown]
